FAERS Safety Report 21440606 (Version 1)
Quarter: 2022Q4

REPORT INFORMATION
  Report Type: Spontaneous
  Country: US (occurrence: None)
  Receive Date: 20221010
  Receipt Date: 20221010
  Transmission Date: 20230113
  Serious: No
  Sender: FDA-Public Use
  Company Number: None

PATIENT
  Age: 72 Year
  Sex: Male

DRUGS (2)
  1. NAPROXEN [Suspect]
     Active Substance: NAPROXEN
     Indication: Pain
     Dates: start: 20220831, end: 20221003
  2. PREDNISONE [Suspect]
     Active Substance: PREDNISONE
     Indication: Pruritus
     Dates: start: 20220831, end: 20221003

REACTIONS (1)
  - Gastric haemorrhage [None]

NARRATIVE: CASE EVENT DATE: 20221002
